FAERS Safety Report 16539205 (Version 1)
Quarter: 2019Q3

REPORT INFORMATION
  Report Type: Spontaneous
  Country: US (occurrence: US)
  Receive Date: 20190708
  Receipt Date: 20190708
  Transmission Date: 20191004
  Serious: No
  Sender: FDA-Public Use
  Company Number: US-MYLANLABS-2019M1054824

PATIENT
  Sex: Female
  Weight: 66 kg

DRUGS (1)
  1. WIXELA INHUB [Suspect]
     Active Substance: FLUTICASONE PROPIONATE\SALMETEROL XINAFOATE
     Indication: WHEEZING
     Dosage: 2 PUFFS TWICE DAILY, BID
     Route: 050

REACTIONS (2)
  - Incorrect dose administered [Unknown]
  - Product dose omission [Unknown]
